FAERS Safety Report 23523196 (Version 1)
Quarter: 2024Q1

REPORT INFORMATION
  Report Type: Spontaneous
  Country: US (occurrence: US)
  Receive Date: 20240214
  Receipt Date: 20240214
  Transmission Date: 20240410
  Serious: No
  Sender: FDA-Public Use
  Company Number: US-HORIZON THERAPEUTICS-HZN-2023-009071

PATIENT

DRUGS (2)
  1. TEPEZZA [Suspect]
     Active Substance: TEPROTUMUMAB-TRBW
     Indication: Endocrine ophthalmopathy
     Dosage: EVERY 3 WEEKS, RECEIVED A TOTAL OF 6 INFUSIONS
     Route: 042
     Dates: start: 202101
  2. UNSPECIFIED INGREDIENT [Suspect]
     Active Substance: UNSPECIFIED INGREDIENT
     Indication: Product used for unknown indication

REACTIONS (8)
  - Anxiety [Unknown]
  - Feeling jittery [Unknown]
  - Mood altered [Unknown]
  - Insomnia [Unknown]
  - Nervousness [Unknown]
  - Lacrimation increased [Not Recovered/Not Resolved]
  - Headache [Unknown]
  - Fatigue [Unknown]
